FAERS Safety Report 10310699 (Version 1)
Quarter: 2014Q3

REPORT INFORMATION
  Report Type: Spontaneous
  Country: US (occurrence: None)
  Receive Date: 20140716
  Receipt Date: 20140716
  Transmission Date: 20150326
  Serious: Yes (Hospitalization)
  Sender: FDA-Public Use
  Company Number: None

PATIENT
  Age: 78 Year
  Sex: Male
  Weight: 78 kg

DRUGS (2)
  1. DOCETAXEL [Suspect]
     Active Substance: DOCETAXEL
     Indication: TONGUE NEOPLASM MALIGNANT STAGE UNSPECIFIED
     Dosage: DAY 1 + 8
     Dates: start: 20140707
  2. RADIATION [Suspect]
     Active Substance: RADIATION THERAPY
     Dosage: 30 (GY) DAY 1-12
     Dates: start: 20140707

REACTIONS (3)
  - Abscess neck [None]
  - Soft tissue infection [None]
  - Pharyngeal fistula [None]

NARRATIVE: CASE EVENT DATE: 20140711
